FAERS Safety Report 6847000-X (Version None)
Quarter: 2010Q3

REPORT INFORMATION
  Report Type: 
  Country: None (occurrence: None)
  Receive Date: 20100716
  Receipt Date: 20100714
  Transmission Date: 20110219
  Serious: Yes (Hospitalization)
  Sender: FDA-Public Use
  Company Number: US-ASTRAZENECA-2006UW07850

PATIENT
  Age: 14512 Day
  Sex: Female
  Weight: 81.2 kg

DRUGS (43)
  1. SEROQUEL [Suspect]
     Indication: SCHIZOPHRENIA
     Route: 048
     Dates: start: 19980101, end: 20050101
  2. SEROQUEL [Suspect]
     Indication: PSYCHOTIC DISORDER
     Route: 048
     Dates: start: 19980101, end: 20050101
  3. SEROQUEL [Suspect]
     Indication: INSOMNIA
     Route: 048
     Dates: start: 19980101, end: 20050101
  4. SEROQUEL [Suspect]
     Indication: BIPOLAR DISORDER
     Route: 048
     Dates: start: 19980101, end: 20050101
  5. SEROQUEL [Suspect]
     Indication: DEPRESSION
     Route: 048
     Dates: start: 19980101, end: 20050101
  6. SEROQUEL [Suspect]
     Dosage: 25 MG-500 MG
     Route: 048
     Dates: start: 20000405
  7. SEROQUEL [Suspect]
     Dosage: 25 MG-500 MG
     Route: 048
     Dates: start: 20000405
  8. SEROQUEL [Suspect]
     Dosage: 25 MG-500 MG
     Route: 048
     Dates: start: 20000405
  9. SEROQUEL [Suspect]
     Dosage: 25 MG-500 MG
     Route: 048
     Dates: start: 20000405
  10. SEROQUEL [Suspect]
     Dosage: 25 MG-500 MG
     Route: 048
     Dates: start: 20000405
  11. ABILIFY [Concomitant]
     Dates: start: 20060101
  12. RISPERDAL [Concomitant]
     Dates: start: 19980101, end: 20010101
  13. THORAZINE [Concomitant]
  14. ZYPREXA [Concomitant]
  15. METHADONE HCL [Concomitant]
     Dates: start: 20020101, end: 20030101
  16. ROCEPHIN [Concomitant]
  17. LEVAQUIN [Concomitant]
  18. PREVACID [Concomitant]
  19. BUSPAR [Concomitant]
  20. VALIUM [Concomitant]
  21. ADVIL LIQUI-GELS [Concomitant]
  22. ACIPHEX [Concomitant]
  23. VICODIN [Concomitant]
  24. ADVAIR DISKUS 100/50 [Concomitant]
  25. ALBUTEROL [Concomitant]
  26. FLEXERIL [Concomitant]
  27. PRILOSEC [Concomitant]
  28. LACTULOSE [Concomitant]
  29. TRAZODONE HYDROCHLORIDE [Concomitant]
  30. KEFLEX [Concomitant]
  31. DIOVAN [Concomitant]
  32. LISINOPRIL [Concomitant]
  33. AVAPRO [Concomitant]
  34. REGLAN [Concomitant]
  35. LORAZEPAM [Concomitant]
  36. PROZAC [Concomitant]
  37. STELAZINE [Concomitant]
  38. BENADRYL [Concomitant]
  39. ULTRAM [Concomitant]
  40. BENTYL [Concomitant]
  41. CIPRO [Concomitant]
  42. GLIPIZIDE [Concomitant]
  43. FENTANYL [Concomitant]

REACTIONS (3)
  - CHOLECYSTITIS ACUTE [None]
  - GALLBLADDER DISORDER [None]
  - TYPE 2 DIABETES MELLITUS [None]
